FAERS Safety Report 6338049-4 (Version None)
Quarter: 2009Q3

REPORT INFORMATION
  Report Type: 
  Country: None (occurrence: None)
  Receive Date: 20090902
  Receipt Date: 20090824
  Transmission Date: 20100115
  Serious: Yes (Other)
  Sender: FDA-Public Use
  Company Number: US-PFIZER INC-2009259425

PATIENT
  Sex: Female

DRUGS (3)
  1. TIKOSYN [Interacting]
  2. CADUET [Suspect]
  3. COUMADIN [Interacting]

REACTIONS (6)
  - ABDOMINAL DISTENSION [None]
  - AFFECT LABILITY [None]
  - DRUG INTERACTION [None]
  - FEELING DRUNK [None]
  - LOSS OF CONSCIOUSNESS [None]
  - WEIGHT DECREASED [None]
